FAERS Safety Report 25417225 (Version 2)
Quarter: 2025Q2

REPORT INFORMATION
  Report Type: Spontaneous
  Country: US (occurrence: US)
  Receive Date: 20250610
  Receipt Date: 20250630
  Transmission Date: 20250717
  Serious: Yes (Other)
  Sender: PFIZER
  Company Number: US-PFIZER INC-202500116252

PATIENT
  Age: 55 Year
  Sex: Male
  Weight: 92.971 kg

DRUGS (3)
  1. CIBINQO [Suspect]
     Active Substance: ABROCITINIB
     Indication: Dermatitis atopic
     Dosage: 100 MG, DAILY
     Route: 048
     Dates: start: 20240625
  2. CIBINQO [Suspect]
     Active Substance: ABROCITINIB
     Dates: start: 20241230
  3. CIBINQO [Suspect]
     Active Substance: ABROCITINIB
     Dates: start: 20250218

REACTIONS (4)
  - Spinal operation [Unknown]
  - Treatment failure [Unknown]
  - Off label use [Unknown]
  - Immature granulocyte count increased [Unknown]

NARRATIVE: CASE EVENT DATE: 20240814
